FAERS Safety Report 19928165 (Version 1)
Quarter: 2021Q4

REPORT INFORMATION
  Report Type: Spontaneous
  Country: US (occurrence: US)
  Receive Date: 20211007
  Receipt Date: 20211007
  Transmission Date: 20220303
  Serious: Yes (Hospitalization, Other)
  Sender: FDA-Public Use
  Company Number: US-CPL-002584

PATIENT
  Age: 59 Year
  Sex: Male

DRUGS (3)
  1. METRONIDAZOLE [Suspect]
     Active Substance: METRONIDAZOLE
     Indication: Osteomyelitis
     Dosage: TWICE DAILY
  2. LORAZEPAM [Concomitant]
     Active Substance: LORAZEPAM
  3. HALOPERIDOL [Concomitant]
     Active Substance: HALOPERIDOL

REACTIONS (3)
  - Toxic leukoencephalopathy [Recovering/Resolving]
  - Catatonia [Unknown]
  - Off label use [Unknown]
